FAERS Safety Report 4634059-3 (Version None)
Quarter: 2005Q2

REPORT INFORMATION
  Report Type: 
  Country: None (occurrence: None)
  Receive Date: 20050413
  Receipt Date: 20050316
  Transmission Date: 20051028
  Serious: Yes (Hospitalization)
  Sender: FDA-Public Use
  Company Number: JP-ROCHE-399549

PATIENT
  Age: 90 Year
  Sex: Female

DRUGS (15)
  1. TAMIFLU [Suspect]
     Route: 048
     Dates: start: 20050310, end: 20050314
  2. CARBOCISTEINE [Concomitant]
     Indication: DRUG USE FOR UNKNOWN INDICATION
     Route: 048
     Dates: start: 20050310, end: 20050314
  3. ROCEPHIN [Concomitant]
     Indication: DRUG USE FOR UNKNOWN INDICATION
     Dosage: THE FIRST THERAPY WAS 10-14 MAR 2005. THE SECOND THERAPY STARTED ON 16 MAR 2005. SAME DOSAGE REGIME+
     Route: 041
     Dates: start: 20050310, end: 20050318
  4. THYRADIN [Concomitant]
     Route: 048
     Dates: start: 20010129
  5. ISOSORBIDE DINITRATE [Concomitant]
     Dosage: FORMULATION: TAPE
     Route: 061
     Dates: start: 20010129
  6. ALLOZYM [Concomitant]
     Route: 048
     Dates: start: 20010129
  7. MAGNESIUM OXIDE [Concomitant]
     Route: 048
     Dates: start: 20010129
  8. SENNOSIDE [Concomitant]
     Route: 048
     Dates: start: 20010129
  9. LASIX [Concomitant]
     Route: 048
     Dates: start: 20010704
  10. GLAKAY [Concomitant]
     Route: 048
     Dates: start: 20031126
  11. HYPEN [Concomitant]
     Route: 048
     Dates: start: 20040204
  12. HARNAL [Concomitant]
     Route: 048
     Dates: start: 20040414
  13. PANTOSIN [Concomitant]
     Route: 048
     Dates: start: 20040519
  14. KALIMATE [Concomitant]
     Route: 048
     Dates: start: 20050214
  15. HUSCODE [Concomitant]
     Dosage: MIXED WITH CHERRY (BROCIN) SOLUTION. DIVIDED INTO THREE.
     Route: 048
     Dates: start: 20050310, end: 20050314

REACTIONS (6)
  - BLOOD UREA INCREASED [None]
  - DELIRIUM [None]
  - EXCITABILITY [None]
  - HAEMOGLOBIN DECREASED [None]
  - RED BLOOD CELL COUNT DECREASED [None]
  - WHITE BLOOD CELL COUNT INCREASED [None]
